FAERS Safety Report 7416891-6 (Version None)
Quarter: 2011Q2

REPORT INFORMATION
  Report Type: 
  Country: None (occurrence: None)
  Receive Date: 20110415
  Receipt Date: 20110404
  Transmission Date: 20111010
  Serious: Yes (Other)
  Sender: FDA-Public Use
  Company Number: AU-JNJFOC-20110312371

PATIENT
  Sex: Female

DRUGS (6)
  1. UNSPECIFIED GENERIC DRUG [Concomitant]
     Route: 065
  2. DURAGESIC-100 [Suspect]
     Indication: PAIN
     Route: 062
  3. DURAGESIC-100 [Suspect]
     Route: 062
  4. KEFLEX [Suspect]
     Indication: CELLULITIS
     Route: 048
  5. DURAGESIC-100 [Suspect]
     Route: 062
  6. KEFLEX [Suspect]
     Indication: LOWER RESPIRATORY TRACT INFECTION
     Route: 048

REACTIONS (3)
  - WRONG TECHNIQUE IN DRUG USAGE PROCESS [None]
  - RASH GENERALISED [None]
  - SCRATCH [None]
